FAERS Safety Report 24562385 (Version 1)
Quarter: 2024Q4

REPORT INFORMATION
  Report Type: Report from Study
  Country: JP (occurrence: JP)
  Receive Date: 20241029
  Receipt Date: 20241029
  Transmission Date: 20250115
  Serious: Yes (Other)
  Sender: PFIZER
  Company Number: JP-PFIZER INC-PV202400108909

PATIENT
  Age: 6 Year
  Sex: Female
  Weight: 18.2 kg

DRUGS (4)
  1. SIROLIMUS [Suspect]
     Active Substance: SIROLIMUS
     Indication: Lymphangioma
     Dosage: 1 MG,1 D
     Route: 048
     Dates: start: 20230228, end: 20230522
  2. SIROLIMUS [Suspect]
     Active Substance: SIROLIMUS
     Dosage: 1.5 MG,1 D
     Route: 048
     Dates: start: 20230523, end: 20230620
  3. SIROLIMUS [Suspect]
     Active Substance: SIROLIMUS
     Dosage: 1 MG,1 D
     Route: 048
     Dates: start: 20230621
  4. SULFAMETHOXAZOLE\TRIMETHOPRIM [Concomitant]
     Active Substance: SULFAMETHOXAZOLE\TRIMETHOPRIM
     Indication: Prophylaxis
     Dosage: UNK
     Route: 048
     Dates: start: 20230301

REACTIONS (2)
  - Stomatitis [Recovering/Resolving]
  - Impaired healing [Recovered/Resolved]

NARRATIVE: CASE EVENT DATE: 20230530
